FAERS Safety Report 23826195 (Version 1)
Quarter: 2024Q2

REPORT INFORMATION
  Report Type: Report from Study
  Country: US (occurrence: US)
  Receive Date: 20240507
  Receipt Date: 20240507
  Transmission Date: 20240717
  Serious: Yes (Other)
  Sender: FDA-Public Use
  Company Number: US-ABBVIE-4712774

PATIENT
  Sex: Male

DRUGS (1)
  1. RINVOQ [Suspect]
     Active Substance: UPADACITINIB
     Indication: Product used for unknown indication
     Route: 048
     Dates: start: 20221231

REACTIONS (6)
  - Cardiac disorder [Unknown]
  - Pneumonitis [Unknown]
  - Gastrointestinal inflammation [Unknown]
  - Inflammation [Unknown]
  - Hypertension [Unknown]
  - Stent placement [Unknown]
